FAERS Safety Report 22018887 (Version 1)
Quarter: 2023Q1

REPORT INFORMATION
  Report Type: Other
  Country: CZ (occurrence: CZ)
  Receive Date: 20230222
  Receipt Date: 20230222
  Transmission Date: 20230417
  Serious: Yes (Other)
  Sender: FDA-Public Use
  Company Number: CZ-MYLANLABS-2022M1133415

PATIENT
  Sex: Male

DRUGS (8)
  1. FLUOROURACIL [Suspect]
     Active Substance: FLUOROURACIL
     Indication: Colorectal cancer metastatic
     Route: 065
     Dates: start: 201903, end: 201907
  2. FLUOROURACIL [Suspect]
     Active Substance: FLUOROURACIL
     Dosage: MOST RECENT DOSE RECEIVED ON //2020
     Route: 065
     Dates: start: 2020
  3. IRINOTECAN [Suspect]
     Active Substance: IRINOTECAN
     Indication: Colorectal cancer metastatic
     Dosage: MOST RECENT DOSE RECEIVED ON //2020
     Route: 065
     Dates: start: 2020
  4. LEUCOVORIN CALCIUM [Suspect]
     Active Substance: LEUCOVORIN CALCIUM
     Indication: Colorectal cancer metastatic
     Dosage: 7 CYCLES
     Route: 065
     Dates: start: 201903, end: 201907
  5. LEUCOVORIN [Suspect]
     Active Substance: LEUCOVORIN
     Indication: Colorectal cancer metastatic
     Dosage: UNK
     Route: 065
     Dates: start: 201903, end: 201907
  6. LEUCOVORIN [Suspect]
     Active Substance: LEUCOVORIN
     Dosage: MOST RECENT DOSE RECEIVED ON //2020
     Route: 065
     Dates: start: 2020
  7. BEVACIZUMAB [Suspect]
     Active Substance: BEVACIZUMAB
     Indication: Colorectal cancer metastatic
     Dosage: 4 CYCLES, MOST RECENT DOSE RECEIVED ON //2020
     Route: 065
     Dates: start: 2020, end: 2020
  8. OXALIPLATIN [Suspect]
     Active Substance: OXALIPLATIN
     Indication: Colorectal cancer metastatic
     Dosage: MOST RECENT DOSE RECEIVED ON /JUL/2019
     Route: 065
     Dates: start: 201903, end: 201907

REACTIONS (4)
  - Haematotoxicity [Unknown]
  - Fatigue [Unknown]
  - Diarrhoea [Unknown]
  - Drug intolerance [Unknown]
